FAERS Safety Report 7035841-8 (Version None)
Quarter: 2010Q4

REPORT INFORMATION
  Report Type: 
  Country: None (occurrence: None)
  Receive Date: 20101008
  Receipt Date: 20100930
  Transmission Date: 20110411
  Serious: Yes (Other)
  Sender: FDA-Public Use
  Company Number: US-AMGEN-QUU442188

PATIENT
  Sex: Female

DRUGS (6)
  1. NEULASTA [Suspect]
     Indication: CHEMOTHERAPY
     Route: 065
     Dates: start: 20100923
  2. ARIXTRA [Concomitant]
  3. DEXAMETHASONE [Concomitant]
  4. UNSPECIFIED ANTINEOPLASTIC AGENT [Concomitant]
  5. UNSPECIFIED MEDICATION [Concomitant]
  6. ADVIL LIQUI-GELS [Concomitant]

REACTIONS (17)
  - ASTHENIA [None]
  - CHEST PAIN [None]
  - CHILLS [None]
  - DECREASED APPETITE [None]
  - DIARRHOEA [None]
  - DRY MOUTH [None]
  - DYSPEPSIA [None]
  - EAR PAIN [None]
  - ERYTHEMA [None]
  - FATIGUE [None]
  - HEADACHE [None]
  - INJECTION SITE HAEMATOMA [None]
  - MOBILITY DECREASED [None]
  - OROPHARYNGEAL PAIN [None]
  - PAIN IN EXTREMITY [None]
  - POLLAKIURIA [None]
  - SWELLING [None]
